FAERS Safety Report 12172910 (Version 2)
Quarter: 2016Q2

REPORT INFORMATION
  Report Type: Spontaneous
  Country: JP (occurrence: JP)
  Receive Date: 20160311
  Receipt Date: 20160405
  Transmission Date: 20160815
  Serious: Yes (Other)
  Sender: FDA-Public Use
  Company Number: JP-BAYER-2016-043447

PATIENT
  Age: 73 Year
  Sex: Male

DRUGS (2)
  1. CLOPIDOGREL [Interacting]
     Active Substance: CLOPIDOGREL BISULFATE
     Route: 050
  2. BAYASPIRIN [Suspect]
     Active Substance: ASPIRIN
     Route: 050

REACTIONS (3)
  - Labelled drug-drug interaction medication error [None]
  - Cerebral infarction [None]
  - Post procedural haemorrhage [None]
